FAERS Safety Report 14401203 (Version 2)
Quarter: 2018Q2

REPORT INFORMATION
  Report Type: Report from Study
  Country: DE (occurrence: DE)
  Receive Date: 20180117
  Receipt Date: 20180412
  Transmission Date: 20180711
  Serious: Yes (Hospitalization)
  Sender: FDA-Public Use
  Company Number: PHHY2018DE004143

PATIENT
  Age: 54 Year
  Sex: Male
  Weight: 114 kg

DRUGS (2)
  1. ENTRESTO [Suspect]
     Active Substance: SACUBITRIL\VALSARTAN
     Indication: CARDIAC FAILURE
     Dosage: 1 DF (49 MG SACUBITRIL AND 51 MG VALSARTAN), UNK
     Route: 048
     Dates: start: 20171222, end: 20180106
  2. IVABRADINE [Concomitant]
     Active Substance: IVABRADINE
     Indication: HEART RATE ABNORMAL
     Dosage: 5 MG, UNK
     Route: 065
     Dates: start: 201711

REACTIONS (4)
  - Blood bilirubin increased [Unknown]
  - Renal impairment [Not Recovered/Not Resolved]
  - Blood lactate dehydrogenase increased [Unknown]
  - Fatigue [Not Recovered/Not Resolved]

NARRATIVE: CASE EVENT DATE: 20180105
